FAERS Safety Report 5804871-3 (Version None)
Quarter: 2008Q3

REPORT INFORMATION
  Report Type: 
  Country: None (occurrence: None)
  Receive Date: 20080709
  Receipt Date: 20080627
  Transmission Date: 20090109
  Serious: Yes (Other)
  Sender: FDA-Public Use
  Company Number: US-PFIZER INC-2005090814

PATIENT
  Sex: Female
  Weight: 94.3 kg

DRUGS (24)
  1. DETROL LA [Suspect]
     Indication: MICTURITION URGENCY
     Route: 048
  2. DETROL LA [Interacting]
     Indication: HYPERTONIC BLADDER
  3. GABAPENTIN [Interacting]
     Indication: NEUROPATHY PERIPHERAL
     Route: 048
  4. SYNTHROID [Concomitant]
     Route: 048
  5. XANAX [Concomitant]
     Route: 048
  6. HYDROCODONE [Concomitant]
     Route: 048
  7. VITAMIN D [Concomitant]
  8. ASCORBIC ACID [Concomitant]
  9. FISH OIL [Concomitant]
  10. HYDROCHLOROTHIAZIDE [Concomitant]
  11. POTASSIUM CHLORIDE [Concomitant]
  12. NAPROXEN [Concomitant]
  13. DIAZEPAM [Concomitant]
  14. ASPIRIN [Concomitant]
  15. NIASPAN [Concomitant]
  16. TAMSULOSIN HCL [Concomitant]
  17. ALLEGRA [Concomitant]
  18. ACIPHEX [Concomitant]
  19. LIDODERM [Concomitant]
  20. VITAMIN B1 TAB [Concomitant]
  21. FOLIC ACID [Concomitant]
  22. VITAMIN B6 [Concomitant]
  23. VITAMIN B-12 [Concomitant]
  24. PHOSPHATIDYL SERINE [Concomitant]

REACTIONS (9)
  - AMNESIA [None]
  - BLOOD 25-HYDROXYCHOLECALCIFEROL DECREASED [None]
  - BLOOD THYROID STIMULATING HORMONE DECREASED [None]
  - DISTURBANCE IN ATTENTION [None]
  - DRUG INTERACTION [None]
  - FATIGUE [None]
  - GLYCOSYLATED HAEMOGLOBIN [None]
  - GLYCOSYLATED HAEMOGLOBIN INCREASED [None]
  - NERVOUSNESS [None]
